FAERS Safety Report 6304238-8 (Version None)
Quarter: 2009Q3

REPORT INFORMATION
  Report Type: 
  Country: None (occurrence: None)
  Receive Date: 20090811
  Receipt Date: 20090730
  Transmission Date: 20100115
  Serious: Yes (Death, Hospitalization, Other)
  Sender: FDA-Public Use
  Company Number: US-JNJFOC-20090710015

PATIENT
  Sex: Male
  Weight: 79.38 kg

DRUGS (34)
  1. REMICADE [Suspect]
     Indication: RHEUMATOID ARTHRITIS
     Dosage: 50 DOSES
     Route: 042
  2. SPORANOX [Concomitant]
     Indication: DRUG USE FOR UNKNOWN INDICATION
     Route: 048
  3. METHOTREXATE [Concomitant]
  4. METHOTREXATE [Concomitant]
     Indication: DRUG USE FOR UNKNOWN INDICATION
  5. DHEA [Concomitant]
     Route: 048
  6. PLAVIX [Concomitant]
     Route: 048
  7. FLOMAX [Concomitant]
     Route: 048
  8. VYTORIN [Concomitant]
     Dosage: 10-40 MG DAILY
     Route: 048
  9. FOLIC ACID [Concomitant]
     Route: 048
  10. TESTIM [Concomitant]
     Route: 062
  11. VITAMIN [Concomitant]
     Route: 048
  12. ASCORBIC ACID [Concomitant]
     Route: 048
  13. CALCIUM [Concomitant]
     Route: 048
  14. ASPIRIN [Concomitant]
     Route: 048
  15. NEXIUM [Concomitant]
     Route: 048
  16. LEVOTHYROXINE SODIUM [Concomitant]
     Route: 048
  17. CLIDINIUM [Concomitant]
     Indication: ABDOMINAL PAIN
     Dosage: 2.5-5 MG 1 CAPSULES 4 TIMES A DAY AS NEEDED
     Route: 048
  18. ITRACONAZOLE [Concomitant]
     Route: 048
  19. NYSTATIN [Concomitant]
     Dosage: 100000 UNIT/ML, 1 TSP SWISH AND SWALLOW FOUR TIMES A DAY
  20. DEXAMETHASONE [Concomitant]
     Dosage: 0.5 MG/5 ML ELIXIR 1 TEASPOON SWISH AND SPIT 4 TIMES A DAY AS NEEDED
     Route: 048
  21. PREDNISONE [Concomitant]
     Route: 048
  22. PREDNISONE [Concomitant]
     Dosage: 10 MG 1-6 TABLETS AS NEEDED
     Route: 048
  23. HYDROCORTISONE [Concomitant]
     Dosage: 2-3 TIMES DAILY TO AFFECTED AREAS
  24. VALTREX [Concomitant]
     Dosage: 1 GRAM 1 TABLET TWICE A DAY X 10 DAYS
     Route: 048
  25. TOPROL-XL [Concomitant]
     Route: 048
  26. HYDROCODONE [Concomitant]
     Dosage: 10-325 MG 1-2 EVERY 6 HOURS AS NEEDED FOR PAIN
     Route: 048
  27. LIDODERM [Concomitant]
     Indication: PAIN
     Dosage: 1-3 PATCH AS NEED
     Route: 062
  28. VIAGRA [Concomitant]
     Route: 048
  29. TRIAMTERENE AND HYDROCHLOROTHIAZIDE [Concomitant]
     Dosage: 37.5-25 MG
     Route: 048
  30. LIDOCAINE HCL VISCOUS [Concomitant]
  31. FUROSEMIDE [Concomitant]
     Indication: SWELLING
     Route: 048
  32. OXYCODONE [Concomitant]
     Dosage: 10-325 MG, 1-2 TABLETS AS NEEDED
     Route: 048
  33. CELEBREX [Concomitant]
     Route: 048
  34. MUPIROCIN [Concomitant]

REACTIONS (8)
  - APHTHOUS STOMATITIS [None]
  - DEATH [None]
  - HISTOPLASMOSIS [None]
  - NERVOUSNESS [None]
  - RHEUMATOID ARTHRITIS [None]
  - STAPHYLOCOCCAL SEPSIS [None]
  - TREMOR [None]
  - URINARY TRACT INFECTION [None]
